FAERS Safety Report 20750357 (Version 1)
Quarter: 2022Q2

REPORT INFORMATION
  Report Type: Spontaneous
  Country: US (occurrence: None)
  Receive Date: 20220426
  Receipt Date: 20220426
  Transmission Date: 20220721
  Serious: Yes (Other)
  Sender: FDA-Public Use
  Company Number: None

PATIENT
  Age: 51 Year
  Sex: Female
  Weight: 90.7 kg

DRUGS (1)
  1. SYNTHROID [Suspect]
     Active Substance: LEVOTHYROXINE SODIUM
     Indication: Post procedural hypothyroidism
     Dosage: OTHER STRENGTH : 88 MCG;?OTHER QUANTITY : 1 PILL ;?FREQUENCY : DAILY;?
     Route: 048
     Dates: start: 20220405

REACTIONS (6)
  - Muscle spasms [None]
  - Muscle spasms [None]
  - Muscle spasms [None]
  - Muscle spasms [None]
  - Product substitution issue [None]
  - Drug level changed [None]

NARRATIVE: CASE EVENT DATE: 20220414
